FAERS Safety Report 21186007 (Version 1)
Quarter: 2022Q3

REPORT INFORMATION
  Report Type: Spontaneous
  Country: US (occurrence: US)
  Receive Date: 20220808
  Receipt Date: 20220808
  Transmission Date: 20221027
  Serious: Yes (Hospitalization, Other)
  Sender: FDA-Public Use
  Company Number: US-SA-2022SA315382

PATIENT
  Age: 56 Year
  Sex: Male

DRUGS (4)
  1. DIPHENHYDRAMINE [Suspect]
     Active Substance: DIPHENHYDRAMINE
     Dosage: 100 MG, HS (4 25-MG TABLETS NIGHTLY TO SLEEP)
  2. DIPHENHYDRAMINE [Suspect]
     Active Substance: DIPHENHYDRAMINE
     Dosage: 900 MG, QD (12 TABLETS 3 TIMES A DAY)
  3. ALPRAZOLAM [Concomitant]
     Active Substance: ALPRAZOLAM
     Indication: Anxiety
  4. BUPRENORPHINE\NALOXONE [Concomitant]
     Active Substance: BUPRENORPHINE\NALOXONE
     Indication: Drug use disorder

REACTIONS (10)
  - Psychotic disorder [Recovered/Resolved]
  - Drug abuse [Recovered/Resolved]
  - Akathisia [Recovered/Resolved]
  - Hallucination [Recovered/Resolved]
  - Paranoia [Recovered/Resolved]
  - Abnormal behaviour [Recovered/Resolved]
  - Delusion [Recovered/Resolved]
  - Extrapyramidal disorder [Recovered/Resolved]
  - Insomnia [Recovered/Resolved]
  - Hallucination, auditory [Recovered/Resolved]
